FAERS Safety Report 9804966 (Version 1)
Quarter: 2014Q1

REPORT INFORMATION
  Report Type: Spontaneous
  Country: US (occurrence: US)
  Receive Date: 20140109
  Receipt Date: 20140109
  Transmission Date: 20141002
  Serious: Yes (Death)
  Sender: FDA-Public Use
  Company Number: US-BAYER-2014-003313

PATIENT
  Age: 32 Year
  Sex: Male

DRUGS (4)
  1. DEXTROMETHORPHAN (ROMILAR, XINLI) +/- GUAIFENESIN [Suspect]
     Route: 065
  2. HEROIN [Suspect]
     Route: 065
  3. ACETAMINOPHEN [Suspect]
     Route: 065
  4. CODEINE [Suspect]
     Route: 065

REACTIONS (1)
  - Drug abuse [Fatal]
